FAERS Safety Report 7895078 (Version 4)
Quarter: 2014Q1

REPORT INFORMATION
  Report Type: Spontaneous
  Country: US (occurrence: None)
  Receive Date: 20110301
  Receipt Date: 20130301
  Transmission Date: 20141002
  Serious: Yes (Other)
  Sender: FDA-Public Use
  Company Number: US-JNJFOC-20100604481

PATIENT
  Age: 42 Year
  Sex: Male
  Weight: 105 kg

DRUGS (7)
  1. MOTRIN [Suspect]
     Indication: FLANK PAIN
     Route: 048
     Dates: start: 20080923, end: 20100527
  2. CRIZOTINIB [Suspect]
     Indication: SMALL CELL LUNG CANCER
     Route: 048
     Dates: start: 20100422, end: 20100515
  3. OXYCONTIN [Concomitant]
  4. OXYCODONE (OXYCODONE) [Concomitant]
  5. ATIVAN [Concomitant]
  6. CELEXA [Concomitant]
  7. MIRALAX [Concomitant]

REACTIONS (2)
  - Alanine aminotransferase increased [None]
  - Aspartate aminotransferase increased [None]
